FAERS Safety Report 21041133 (Version 2)
Quarter: 2022Q3

REPORT INFORMATION
  Report Type: Other
  Country: US (occurrence: None)
  Receive Date: 20220705
  Receipt Date: 20220714
  Transmission Date: 20221027
  Serious: No
  Sender: FDA-Public Use
  Company Number: US-ROCHE-3131389

PATIENT
  Age: 59 Year
  Sex: Female
  Weight: 59.020 kg

DRUGS (1)
  1. OCREVUS [Suspect]
     Active Substance: OCRELIZUMAB
     Indication: Relapsing-remitting multiple sclerosis
     Dosage: YES, PRESCRIBED AS INFUSE 300MG IV DAY 1, DAY 15, INFUSE 600MG IV EVERY 6 MONTHS
     Route: 042
     Dates: start: 20181004

REACTIONS (3)
  - COVID-19 [Recovered/Resolved]
  - Weight decreased [Not Recovered/Not Resolved]
  - Cough [Recovered/Resolved]

NARRATIVE: CASE EVENT DATE: 20210101
